FAERS Safety Report 4947650-1 (Version None)
Quarter: 2006Q1

REPORT INFORMATION
  Report Type: 
  Country: None (occurrence: None)
  Receive Date: 20060317
  Receipt Date: 20060317
  Transmission Date: 20060701
  Serious: Yes (Other)
  Sender: FDA-Public Use
  Company Number: None

PATIENT
  Age: 68 Year
  Sex: Male

DRUGS (1)
  1. FORADIL [Suspect]
     Dosage: INHALE CONTENTS OF ONE CAPSULE IN AEROLIZER CHAMBER TWICE A DAY
     Route: 055

REACTIONS (1)
  - POOR QUALITY DRUG ADMINISTERED [None]
